FAERS Safety Report 5525032-1 (Version None)
Quarter: 2007Q4

REPORT INFORMATION
  Report Type: 
  Country: None (occurrence: None)
  Receive Date: 20071119
  Receipt Date: 20071112
  Transmission Date: 20080405
  Serious: Yes (Death)
  Sender: FDA-Public Use
  Company Number: 163-21880-07101334

PATIENT
  Age: 77 Year
  Sex: Male

DRUGS (2)
  1. REVLIMID [Suspect]
     Indication: MULTIPLE MYELOMA
     Dosage: 25 MG, X21 DAYS EVERY 28 DAYS, ORAL ; ORAL
     Route: 048
     Dates: start: 20060801, end: 20061001
  2. REVLIMID [Suspect]
     Indication: MULTIPLE MYELOMA
     Dosage: 25 MG, X21 DAYS EVERY 28 DAYS, ORAL ; ORAL
     Route: 048
     Dates: start: 20070401, end: 20071001

REACTIONS (4)
  - FULL BLOOD COUNT DECREASED [None]
  - MALIGNANT NEOPLASM PROGRESSION [None]
  - MULTIPLE MYELOMA [None]
  - NEUROPATHY [None]
